FAERS Safety Report 5911695-5 (Version None)
Quarter: 2008Q4

REPORT INFORMATION
  Report Type: 
  Country: None (occurrence: None)
  Receive Date: 20081007
  Receipt Date: 20080929
  Transmission Date: 20090506
  Serious: Yes (Hospitalization)
  Sender: FDA-Public Use
  Company Number: US-ELI_LILLY_AND_COMPANY-US200809006486

PATIENT
  Sex: Male

DRUGS (5)
  1. BYETTA [Suspect]
     Indication: TYPE 2 DIABETES MELLITUS
     Dosage: 5 UG, 2/D
     Route: 058
     Dates: start: 20070101
  2. GLIPIZIDE [Concomitant]
     Dosage: UNK, DAILY (1/D)
  3. AVANDIA [Concomitant]
     Dosage: UNK, DAILY (1/D)
  4. METFORMIN HCL [Concomitant]
     Dosage: UNK, DAILY (1/D)
  5. ASPIRIN [Concomitant]
     Dosage: 81 MG, DAILY (1/D)

REACTIONS (3)
  - TOOTH DISORDER [None]
  - VASCULAR GRAFT [None]
  - VISUAL IMPAIRMENT [None]
